FAERS Safety Report 16526420 (Version 2)
Quarter: 2019Q3

REPORT INFORMATION
  Report Type: Report from Study
  Country: TR (occurrence: TR)
  Receive Date: 20190703
  Receipt Date: 20190717
  Transmission Date: 20191004
  Serious: Yes (Hospitalization)
  Sender: FDA-Public Use
  Company Number: TR-CELGENEUS-TUR-20190607987

PATIENT
  Age: 67 Year
  Sex: Female
  Weight: 75 kg

DRUGS (42)
  1. PAROL [Concomitant]
     Active Substance: ACETAMINOPHEN
     Route: 048
     Dates: start: 20190412, end: 20190412
  2. LANSOR [Concomitant]
     Active Substance: LANSOPRAZOLE
     Indication: PROPHYLAXIS
     Route: 048
     Dates: start: 20190314, end: 20190314
  3. LANSOR [Concomitant]
     Active Substance: LANSOPRAZOLE
     Route: 048
     Dates: start: 20190425, end: 20190425
  4. KYTRIL [Concomitant]
     Active Substance: GRANISETRON HYDROCHLORIDE
     Indication: PROPHYLAXIS
     Route: 041
     Dates: start: 20190412, end: 20190412
  5. ZOMETA [Concomitant]
     Active Substance: ZOLEDRONIC ACID
     Indication: PROPHYLAXIS
     Route: 041
     Dates: start: 20190314, end: 20190314
  6. NEUPOGEN [Concomitant]
     Active Substance: FILGRASTIM
     Indication: TRANSIENT ISCHAEMIC ATTACK
  7. POMALIDOMIDE [Suspect]
     Active Substance: POMALIDOMIDE
     Indication: PLASMA CELL MYELOMA
     Dosage: 4 MILLIGRAM
     Route: 048
     Dates: start: 20171227, end: 20171227
  8. POMALIDOMIDE [Suspect]
     Active Substance: POMALIDOMIDE
     Dosage: 4 MILLIGRAM
     Route: 048
     Dates: start: 20190522, end: 20190611
  9. DEXAMETHASONE. [Suspect]
     Active Substance: DEXAMETHASONE
     Dosage: 20 MILLIGRAM
     Route: 048
     Dates: start: 20171227, end: 20171227
  10. AVIL [Concomitant]
     Active Substance: PHENIRAMINE
     Route: 041
     Dates: start: 20190328, end: 20190328
  11. AVIL [Concomitant]
     Active Substance: PHENIRAMINE
     Route: 041
     Dates: start: 20190425, end: 20190425
  12. RANITAB [Concomitant]
     Route: 041
     Dates: start: 20190328, end: 20190328
  13. G-CSF [Concomitant]
     Active Substance: GRANULOCYTE COLONY-STIMULATING FACTOR NOS
     Route: 058
     Dates: start: 20190507, end: 20190507
  14. CALCIMAX [Concomitant]
     Active Substance: CALCIUM CARBONATE\CHOLECALCIFEROL
     Indication: PRODUCT USED FOR UNKNOWN INDICATION
     Route: 065
  15. VENTOLINE [Concomitant]
     Active Substance: ALBUTEROL
     Indication: PRODUCT USED FOR UNKNOWN INDICATION
     Route: 065
     Dates: start: 2008
  16. DESAL [Concomitant]
     Active Substance: FUROSEMIDE
     Indication: PRODUCT USED FOR UNKNOWN INDICATION
     Route: 065
     Dates: start: 20181128
  17. PAROL [Concomitant]
     Active Substance: ACETAMINOPHEN
     Route: 048
     Dates: start: 20190328, end: 20190328
  18. G-CSF [Concomitant]
     Active Substance: GRANULOCYTE COLONY-STIMULATING FACTOR NOS
     Route: 058
     Dates: start: 20190506, end: 20190506
  19. RANITAB [Concomitant]
     Route: 041
     Dates: start: 20190425, end: 20190425
  20. LANSOR [Concomitant]
     Active Substance: LANSOPRAZOLE
     Route: 048
     Dates: start: 20190522, end: 20190522
  21. AVIL [Concomitant]
     Active Substance: PHENIRAMINE
     Indication: PROPHYLAXIS
     Route: 041
     Dates: start: 20190314, end: 20190314
  22. IVIG [Concomitant]
     Active Substance: HUMAN IMMUNOGLOBULIN G
     Indication: PROPHYLAXIS
     Route: 041
     Dates: start: 20190326, end: 20190326
  23. IVIG [Concomitant]
     Active Substance: HUMAN IMMUNOGLOBULIN G
     Route: 041
     Dates: start: 20190524, end: 20190524
  24. ASPIRIN. [Concomitant]
     Active Substance: ASPIRIN
     Indication: PRODUCT USED FOR UNKNOWN INDICATION
     Route: 065
     Dates: start: 20180412
  25. ZOMETA [Concomitant]
     Active Substance: ZOLEDRONIC ACID
     Route: 041
     Dates: start: 20190522, end: 20190522
  26. SAR 650984 [Suspect]
     Active Substance: ISATUXIMAB
     Dosage: 10 MILLIGRAM/KILOGRAM
     Route: 042
     Dates: start: 20171227, end: 20171227
  27. AVIL [Concomitant]
     Active Substance: PHENIRAMINE
     Route: 041
     Dates: start: 20190412, end: 20190412
  28. RANITAB [Concomitant]
     Indication: PROPHYLAXIS
     Route: 041
     Dates: start: 20190314, end: 20190314
  29. PAROL [Concomitant]
     Active Substance: ACETAMINOPHEN
     Indication: PROPHYLAXIS
     Route: 048
     Dates: start: 20190314, end: 20190314
  30. PAROL [Concomitant]
     Active Substance: ACETAMINOPHEN
     Route: 048
     Dates: start: 20190425, end: 20190425
  31. PAROL [Concomitant]
     Active Substance: ACETAMINOPHEN
     Route: 048
     Dates: start: 20190522, end: 20190522
  32. NEUPOGEN [Concomitant]
     Active Substance: FILGRASTIM
     Indication: PROPHYLAXIS
     Route: 065
     Dates: start: 2019
  33. DEXAMETHASONE. [Suspect]
     Active Substance: DEXAMETHASONE
     Indication: PLASMA CELL MYELOMA
     Dosage: 20 MILLIGRAM
     Route: 048
  34. SAR 650984 [Suspect]
     Active Substance: ISATUXIMAB
     Indication: PLASMA CELL MYELOMA
     Dosage: 10 MILLIGRAM/KILOGRAM (ON DAY 1, 8, 15, AND 22)
     Route: 042
  35. CIPRAM [Concomitant]
     Active Substance: CITALOPRAM HYDROBROMIDE
     Indication: PRODUCT USED FOR UNKNOWN INDICATION
     Route: 065
     Dates: start: 2012
  36. SPASMEX [Concomitant]
     Indication: PRODUCT USED FOR UNKNOWN INDICATION
     Route: 065
     Dates: start: 2015
  37. AVIL [Concomitant]
     Active Substance: PHENIRAMINE
     Route: 041
     Dates: start: 20190522, end: 20190522
  38. RANITAB [Concomitant]
     Route: 041
     Dates: start: 20190412, end: 20190412
  39. LANSOR [Concomitant]
     Active Substance: LANSOPRAZOLE
     Route: 048
     Dates: start: 20190328, end: 20190328
  40. ZOMETA [Concomitant]
     Active Substance: ZOLEDRONIC ACID
     Route: 041
     Dates: start: 20190412, end: 20190412
  41. G-CSF [Concomitant]
     Active Substance: GRANULOCYTE COLONY-STIMULATING FACTOR NOS
     Indication: PROPHYLAXIS
     Route: 058
     Dates: start: 20190328, end: 20190328
  42. RANITAB [Concomitant]
     Route: 041
     Dates: start: 20190522, end: 20190522

REACTIONS (1)
  - Transient ischaemic attack [Recovered/Resolved]

NARRATIVE: CASE EVENT DATE: 20190611
